FAERS Safety Report 6570571-8 (Version None)
Quarter: 2010Q1

REPORT INFORMATION
  Report Type: 
  Country: None (occurrence: None)
  Receive Date: 20100204
  Receipt Date: 20100122
  Transmission Date: 20100710
  Serious: Yes (Other)
  Sender: FDA-Public Use
  Company Number: GR-ELI_LILLY_AND_COMPANY-GR201001004609

PATIENT
  Age: 95 Year
  Sex: Female

DRUGS (5)
  1. ZYPREXA [Suspect]
     Indication: DEMENTIA
     Dosage: 5 MG, DAILY (1/D)
     Route: 065
     Dates: start: 20100120, end: 20100120
  2. ZYPREXA [Suspect]
     Dosage: 2.5 MG, DAILY (1/D)
     Dates: start: 20100121
  3. RISPERIDONE [Concomitant]
     Dosage: 2 MG, DAILY (1/D)
     Route: 048
  4. EXELON [Concomitant]
     Indication: DEMENTIA
     Dosage: 4.6 MG, DAILY (1/D)
     Route: 062
  5. SALOSPIR                           /00002701/ [Concomitant]
     Indication: PROPHYLAXIS
     Dosage: 100 MG, DAILY (1/D)
     Route: 048

REACTIONS (3)
  - AGITATION [None]
  - CONFUSIONAL STATE [None]
  - OFF LABEL USE [None]
